FAERS Safety Report 8028004-0 (Version None)
Quarter: 2012Q1

REPORT INFORMATION
  Report Type: 
  Country: None (occurrence: None)
  Receive Date: 20120106
  Receipt Date: 20110316
  Transmission Date: 20120608
  Serious: No
  Sender: FDA-Public Use
  Company Number: US-MYLANLABS-2011S1005588

PATIENT
  Age: 20 Year
  Sex: Male

DRUGS (1)
  1. PHENYTOIN SODIUM CAP [Suspect]
     Indication: CONVULSION
     Dates: start: 20090101

REACTIONS (2)
  - THERAPEUTIC RESPONSE UNEXPECTED [None]
  - BLOOD CREATININE DECREASED [None]
